FAERS Safety Report 11191881 (Version 1)
Quarter: 2015Q2

REPORT INFORMATION
  Report Type: Spontaneous
  Country: US (occurrence: US)
  Receive Date: 20150616
  Receipt Date: 20150616
  Transmission Date: 20150821
  Serious: Yes (Other)
  Sender: FDA-Public Use
  Company Number: US-ABBVIE-15K-163-1406363-00

PATIENT
  Sex: Female
  Weight: 127.12 kg

DRUGS (9)
  1. ATORVASTATIN [Concomitant]
     Active Substance: ATORVASTATIN
     Indication: BLOOD CHOLESTEROL INCREASED
  2. LEVOTHYROXINE [Concomitant]
     Active Substance: LEVOTHYROXINE
     Indication: HYPOTHYROIDISM
  3. HUMIRA [Suspect]
     Active Substance: ADALIMUMAB
     Indication: PSORIASIS
     Route: 058
     Dates: start: 2009
  4. AMBIEN [Concomitant]
     Active Substance: ZOLPIDEM TARTRATE
     Indication: SLEEP DISORDER THERAPY
  5. ATORVASTATIN [Concomitant]
     Active Substance: ATORVASTATIN
  6. FENOFIBRATE. [Concomitant]
     Active Substance: FENOFIBRATE
     Indication: BLOOD CHOLESTEROL INCREASED
  7. FENOFIBRATE. [Concomitant]
     Active Substance: FENOFIBRATE
  8. MOBIC [Concomitant]
     Active Substance: MELOXICAM
     Indication: PAIN
  9. TRAMADOL [Concomitant]
     Active Substance: TRAMADOL
     Indication: PAIN

REACTIONS (2)
  - Lupus-like syndrome [Unknown]
  - Butterfly rash [Unknown]
